FAERS Safety Report 9135264 (Version 1)
Quarter: 2013Q1

REPORT INFORMATION
  Report Type: Spontaneous
  Country: US (occurrence: US)
  Receive Date: 20130304
  Receipt Date: 20130304
  Transmission Date: 20140127
  Serious: No
  Sender: FDA-Public Use
  Company Number: US-BAYER-2013-020673

PATIENT
  Age: 29 Year
  Sex: Female
  Weight: 72 kg

DRUGS (2)
  1. ALEVE CAPLET/TABLET,MIDOL EXTENDED RELIEF CAPLET [Suspect]
     Indication: TOOTHACHE
     Route: 048
  2. NYQUIL [Concomitant]

REACTIONS (5)
  - Anxiety [Recovered/Resolved]
  - Overdose [None]
  - Dizziness [Recovered/Resolved]
  - Pharyngeal erythema [Recovered/Resolved]
  - Frequent bowel movements [Not Recovered/Not Resolved]
